FAERS Safety Report 5083406-X (Version None)
Quarter: 2006Q3

REPORT INFORMATION
  Report Type: 
  Country: None (occurrence: None)
  Receive Date: 20060818
  Receipt Date: 20060809
  Transmission Date: 20061208
  Serious: Yes (Death, Hospitalization, Other)
  Sender: FDA-Public Use
  Company Number: IT-BRISTOL-MYERS SQUIBB COMPANY-13470794

PATIENT
  Age: 84 Year
  Sex: Male

DRUGS (2)
  1. COUMADIN [Suspect]
     Indication: ATRIAL FIBRILLATION
     Dates: end: 20060731
  2. TAREG [Concomitant]
     Dates: end: 20060731

REACTIONS (4)
  - CEREBRAL HAEMORRHAGE [None]
  - COMA [None]
  - HEMIPLEGIA [None]
  - INTERNATIONAL NORMALISED RATIO ABNORMAL [None]
